FAERS Safety Report 9506745 (Version 1)
Quarter: 2013Q3

REPORT INFORMATION
  Report Type: Spontaneous
  Country: US (occurrence: US)
  Receive Date: 20130908
  Receipt Date: 20130908
  Transmission Date: 20140515
  Serious: No
  Sender: FDA-Public Use
  Company Number: US-009507513-1309USA001363

PATIENT
  Sex: Female

DRUGS (4)
  1. COZAAR [Suspect]
     Dosage: UNK
     Route: 048
     Dates: start: 201304, end: 2013
  2. NORVASC [Suspect]
     Dosage: UNK
     Dates: start: 201304, end: 2013
  3. PREDNISONE [Concomitant]
     Indication: RHEUMATOID ARTHRITIS
  4. CYMBALTA [Concomitant]
     Indication: PAIN

REACTIONS (1)
  - Drug ineffective [Unknown]
